FAERS Safety Report 5813572-7 (Version None)
Quarter: 2008Q3

REPORT INFORMATION
  Report Type: 
  Country: None (occurrence: None)
  Receive Date: 20080717
  Receipt Date: 20080710
  Transmission Date: 20090109
  Serious: Yes (Hospitalization, Other)
  Sender: FDA-Public Use
  Company Number: US-BRISTOL-MYERS SQUIBB COMPANY-14256010

PATIENT
  Age: 70 Year
  Sex: Female
  Weight: 58 kg

DRUGS (2)
  1. CETUXIMAB [Suspect]
     Indication: GASTROINTESTINAL CARCINOMA
     Dosage: START DATE OF FIRST COURSE : 28/05/2008
     Route: 042
     Dates: start: 20080618, end: 20080618
  2. TARCEVA [Suspect]
     Indication: GASTROINTESTINAL CARCINOMA
     Dosage: START DATE - 28MAY08
     Route: 048
     Dates: start: 20080625, end: 20080625

REACTIONS (6)
  - ALANINE AMINOTRANSFERASE INCREASED [None]
  - ASPARTATE AMINOTRANSFERASE INCREASED [None]
  - BLOOD ALKALINE PHOSPHATASE INCREASED [None]
  - HEPATIC FUNCTION ABNORMAL [None]
  - HYPERBILIRUBINAEMIA [None]
  - THROMBOSIS [None]
